FAERS Safety Report 13652395 (Version 1)
Quarter: 2017Q2

REPORT INFORMATION
  Report Type: Spontaneous
  Country: AT (occurrence: AT)
  Receive Date: 20170614
  Receipt Date: 20170614
  Transmission Date: 20170830
  Serious: Yes (Hospitalization)
  Sender: FDA-Public Use
  Company Number: AT-PFIZER INC-2017073707

PATIENT
  Age: 27 Year
  Sex: Female
  Weight: 80 kg

DRUGS (17)
  1. MERCILON [Concomitant]
     Active Substance: DESOGESTREL\ETHINYL ESTRADIOL
     Dosage: UNK
  2. ZELDOX [Suspect]
     Active Substance: ZIPRASIDONE
     Dosage: 120 MG, UNK
     Route: 048
     Dates: start: 20170104
  3. TRITTICO XR [Concomitant]
     Active Substance: TRAZODONE HYDROCHLORIDE
     Dosage: 50 MG, UNK
     Dates: start: 20161222, end: 20161222
  4. TRUXAL [Concomitant]
     Active Substance: CHLORPROTHIXENE
     Dosage: 100 MG, UNK
     Dates: start: 20161220, end: 20170103
  5. TRITTICO XR [Concomitant]
     Active Substance: TRAZODONE HYDROCHLORIDE
     Dosage: 150 MG, UNK
     Dates: start: 20161227
  6. PRAXITEN [Concomitant]
     Active Substance: OXAZEPAM
     Dosage: 15 MG, UNK
     Dates: start: 20161226, end: 20161226
  7. PRAXITEN [Concomitant]
     Active Substance: OXAZEPAM
     Dosage: 37.5 MG, UNK
     Dates: start: 20161224, end: 20161224
  8. TRUXAL [Concomitant]
     Active Substance: CHLORPROTHIXENE
     Dosage: 50 MG, UNK
     Dates: start: 20170104, end: 20170105
  9. NOZINAN [Concomitant]
     Active Substance: LEVOMEPROMAZINE
     Dosage: 50 MG, UNK
     Dates: start: 20161221, end: 20161221
  10. TRITTICO XR [Concomitant]
     Active Substance: TRAZODONE HYDROCHLORIDE
     Dosage: 100 MG, UNK
     Dates: start: 20161223, end: 20161226
  11. ZELDOX [Suspect]
     Active Substance: ZIPRASIDONE
     Dosage: 160 MG, UNK
     Route: 048
     Dates: start: 20161228, end: 20170103
  12. GEROLAMIC [Concomitant]
     Dosage: 50 MG, UNK
     Route: 048
     Dates: start: 20161104
  13. PRAXITEN [Concomitant]
     Active Substance: OXAZEPAM
     Dosage: 22.5 MG, UNK
     Dates: start: 20161225, end: 20161225
  14. PRAXITEN [Concomitant]
     Active Substance: OXAZEPAM
     Dosage: 7.5 MG, UNK
     Dates: start: 20161227, end: 20161227
  15. NOZINAN [Concomitant]
     Active Substance: LEVOMEPROMAZINE
     Dosage: 25 MG, UNK
     Dates: start: 20161222, end: 20161222
  16. ZELDOX [Suspect]
     Active Substance: ZIPRASIDONE
     Dosage: 60MG - 280 MG
     Route: 048
     Dates: start: 20161104, end: 20161227
  17. PRAXITEN [Concomitant]
     Active Substance: OXAZEPAM
     Dosage: 52.5 MG, UNK
     Dates: start: 20161220, end: 20161223

REACTIONS (1)
  - Parkinsonism [Recovered/Resolved]

NARRATIVE: CASE EVENT DATE: 20161215
